FAERS Safety Report 13690598 (Version 2)
Quarter: 2017Q4

REPORT INFORMATION
  Report Type: Spontaneous
  Country: DE (occurrence: DE)
  Receive Date: 20170626
  Receipt Date: 20171126
  Transmission Date: 20180320
  Serious: Yes (Hospitalization, Other)
  Sender: FDA-Public Use
  Company Number: DE-CELGENEUS-DEU-20170604776

PATIENT
  Age: 56 Year
  Sex: Male

DRUGS (1)
  1. AZACITIDINE. [Suspect]
     Active Substance: AZACITIDINE
     Indication: PRODUCT USED FOR UNKNOWN INDICATION
     Route: 065
     Dates: start: 20160829

REACTIONS (3)
  - Acute graft versus host disease in intestine [Recovering/Resolving]
  - Graft versus host disease in gastrointestinal tract [Recovered/Resolved]
  - Necrotising colitis [Recovering/Resolving]

NARRATIVE: CASE EVENT DATE: 20170309
